FAERS Safety Report 4621927-1 (Version None)
Quarter: 2005Q1

REPORT INFORMATION
  Report Type: 
  Country: None (occurrence: None)
  Receive Date: 20050329
  Receipt Date: 20050323
  Transmission Date: 20050727
  Serious: Yes (Other)
  Sender: FDA-Public Use
  Company Number: PHBS2005AR04201

PATIENT
  Age: 0 Day
  Sex: Male

DRUGS (2)
  1. DIAZEPAM [Concomitant]
     Route: 064
  2. TRILEPTAL [Suspect]
     Route: 064

REACTIONS (3)
  - DRUG EXPOSURE DURING PREGNANCY [None]
  - GASTROINTESTINAL TUBE INSERTION [None]
  - POOR SUCKING REFLEX [None]
